FAERS Safety Report 13151520 (Version 2)
Quarter: 2017Q1

REPORT INFORMATION
  Report Type: Spontaneous
  Country: IT (occurrence: IT)
  Receive Date: 20170125
  Receipt Date: 20170227
  Transmission Date: 20170428
  Serious: Yes (Other)
  Sender: FDA-Public Use
  Company Number: IT-TEVA-564822ISR

PATIENT
  Age: 51 Year
  Sex: Male

DRUGS (4)
  1. LEVODOPA [Suspect]
     Active Substance: LEVODOPA
     Indication: PARKINSON^S DISEASE
     Dosage: DOUBLED DOSES
     Route: 065
  2. PRAMIPEXOLE. [Suspect]
     Active Substance: PRAMIPEXOLE
     Indication: PARKINSON^S DISEASE
     Dosage: 2.8 MILLIGRAM DAILY;
     Route: 065
  3. LEVODOPA [Suspect]
     Active Substance: LEVODOPA
     Indication: PARKINSON^S DISEASE
     Dosage: 700 MILLIGRAM DAILY;
     Route: 065
  4. PRAMIPEXOLE. [Suspect]
     Active Substance: PRAMIPEXOLE
     Indication: PARKINSON^S DISEASE
     Dosage: 3.15 MILLIGRAM DAILY;
     Route: 065

REACTIONS (8)
  - Drug abuse [Not Recovered/Not Resolved]
  - Tardive dyskinesia [Unknown]
  - Product formulation issue [Unknown]
  - Depressive symptom [Unknown]
  - Dopamine dysregulation syndrome [Not Recovered/Not Resolved]
  - Anxiety [Unknown]
  - Hypomania [Unknown]
  - Mood altered [Unknown]
